FAERS Safety Report 6743294-X (Version None)
Quarter: 2010Q2

REPORT INFORMATION
  Report Type: 
  Country: None (occurrence: None)
  Receive Date: 20100527
  Receipt Date: 20100519
  Transmission Date: 20101027
  Serious: Yes (Other)
  Sender: FDA-Public Use
  Company Number: US-JNJFOC-20100508629

PATIENT
  Sex: Female
  Weight: 116.58 kg

DRUGS (5)
  1. FENTANYL CITRATE [Suspect]
     Indication: NECK PAIN
     Route: 062
  2. FENTANYL CITRATE [Suspect]
     Indication: BACK PAIN
     Route: 062
  3. FENTANYL CITRATE [Suspect]
     Indication: NECK PAIN
     Route: 062
  4. FENTANYL CITRATE [Suspect]
     Indication: BACK PAIN
     Route: 062
  5. HYDROCODONE [Concomitant]
     Indication: BREAKTHROUGH PAIN
     Route: 048

REACTIONS (3)
  - BEDRIDDEN [None]
  - DEPRESSION [None]
  - DRUG INEFFECTIVE [None]
